FAERS Safety Report 20385384 (Version 1)
Quarter: 2022Q1

REPORT INFORMATION
  Report Type: Spontaneous
  Country: US (occurrence: None)
  Receive Date: 20220127
  Receipt Date: 20220127
  Transmission Date: 20220424
  Serious: No
  Sender: FDA-Public Use
  Company Number: None

PATIENT
  Age: 51 Year
  Sex: Female
  Weight: 120.15 kg

DRUGS (4)
  1. IBRANCE [Suspect]
     Active Substance: PALBOCICLIB
     Indication: Breast cancer
     Dosage: OTHER FREQUENCY : QD FOR 21/28 DAYS;?
     Route: 048
  2. FASLODEX [Concomitant]
     Active Substance: FULVESTRANT
  3. Calcium-Vitamin D 500mg-200IU [Concomitant]
  4. NAPROXEN [Concomitant]
     Active Substance: NAPROXEN

REACTIONS (1)
  - COVID-19 [None]

NARRATIVE: CASE EVENT DATE: 20220127
